FAERS Safety Report 5848974-6 (Version None)
Quarter: 2008Q3

REPORT INFORMATION
  Report Type: 
  Country: None (occurrence: None)
  Receive Date: 20080818
  Receipt Date: 20080818
  Transmission Date: 20090109
  Serious: Yes (Hospitalization, Disabling)
  Sender: FDA-Public Use
  Company Number: None

PATIENT
  Age: 80 Year
  Sex: Female
  Weight: 97.5234 kg

DRUGS (2)
  1. RISPERDAL [Suspect]
     Indication: CONFUSIONAL STATE
     Dosage: 2 MG BID PO
     Route: 048
     Dates: start: 20080111, end: 20080112
  2. RISPERDAL [Suspect]
     Indication: HOSPITALISATION
     Dosage: 2 MG BID PO
     Route: 048
     Dates: start: 20080111, end: 20080112

REACTIONS (8)
  - CHOKING [None]
  - CONFUSIONAL STATE [None]
  - CONTRAINDICATION TO MEDICAL TREATMENT [None]
  - CONVULSION [None]
  - DRUG LEVEL INCREASED [None]
  - EATING DISORDER [None]
  - MEDICATION ERROR [None]
  - SWOLLEN TONGUE [None]
